FAERS Safety Report 7245822-7 (Version None)
Quarter: 2011Q1

REPORT INFORMATION
  Report Type: 
  Country: None (occurrence: None)
  Receive Date: 20110126
  Receipt Date: 20110118
  Transmission Date: 20110831
  Serious: Yes (Death, Hospitalization)
  Sender: FDA-Public Use
  Company Number: DE-ACTELION-A-CH2011-44011

PATIENT
  Age: 60 Year
  Sex: Male
  Weight: 82 kg

DRUGS (7)
  1. TOREM [Concomitant]
  2. OXYGEN [Concomitant]
  3. DELIX [Concomitant]
  4. TRACLEER [Suspect]
     Indication: PULMONARY ARTERIAL HYPERTENSION
     Dosage: UNK
     Route: 048
     Dates: end: 20101001
  5. TRAMAL [Concomitant]
  6. REVATIO [Suspect]
  7. INSPRA [Concomitant]

REACTIONS (7)
  - MALAISE [None]
  - ACUTE HEPATIC FAILURE [None]
  - PLATELET COUNT DECREASED [None]
  - YELLOW SKIN [None]
  - DECREASED APPETITE [None]
  - GAMMA-GLUTAMYLTRANSFERASE INCREASED [None]
  - MULTI-ORGAN FAILURE [None]
